FAERS Safety Report 5450081-1 (Version None)
Quarter: 2007Q3

REPORT INFORMATION
  Report Type: 
  Country: None (occurrence: None)
  Receive Date: 20070912
  Receipt Date: 20070904
  Transmission Date: 20080115
  Serious: Yes (Death, Life-Threatening, Hospitalization, Disabling)
  Sender: FDA-Public Use
  Company Number: PK-MERCK-0709USA00123

PATIENT
  Age: 30 Year
  Sex: Male

DRUGS (1)
  1. PRIMAXIN [Suspect]
     Indication: FEBRILE NEUTROPENIA
     Route: 042
     Dates: start: 20070828, end: 20070828

REACTIONS (2)
  - SUDDEN CARDIAC DEATH [None]
  - SWELLING FACE [None]
